FAERS Safety Report 21775686 (Version 2)
Quarter: 2023Q1

REPORT INFORMATION
  Report Type: Report from Study
  Country: BR (occurrence: BR)
  Receive Date: 20221226
  Receipt Date: 20230111
  Transmission Date: 20230418
  Serious: Yes (Other)
  Sender: FDA-Public Use
  Company Number: BR-002147023-NVSC2022BR294782

PATIENT
  Age: 81 Year
  Sex: Male

DRUGS (1)
  1. TASIGNA [Suspect]
     Active Substance: NILOTINIB
     Indication: Myeloid leukaemia
     Dosage: UNK
     Route: 065

REACTIONS (3)
  - Dementia Alzheimer^s type [Unknown]
  - Memory impairment [Unknown]
  - Nervousness [Unknown]

NARRATIVE: CASE EVENT DATE: 20220916
